FAERS Safety Report 9006173 (Version 1)
Quarter: 2012Q4

REPORT INFORMATION
  Report Type: Spontaneous
  Country: US (occurrence: None)
  Receive Date: 20121226
  Receipt Date: 20121226
  Transmission Date: 20130627
  Serious: Yes (Hospitalization, Other)
  Sender: FDA-Public Use
  Company Number: ADR-2012-02285

PATIENT
  Sex: Male

DRUGS (2)
  1. BACLOFEN [Suspect]
     Indication: SPASTICITY
  2. BACLOFEN [Suspect]
     Indication: CEREBRAL PALSY

REACTIONS (9)
  - Malaise [None]
  - Gastrointestinal motility disorder [None]
  - Aphagia [None]
  - Fluid intake reduced [None]
  - Food intolerance [None]
  - Nausea [None]
  - Faecal volume increased [None]
  - Gastric disorder [None]
  - Diarrhoea [None]
